FAERS Safety Report 21837423 (Version 1)
Quarter: 2023Q1

REPORT INFORMATION
  Report Type: Spontaneous
  Country: US (occurrence: None)
  Receive Date: 20230106
  Receipt Date: 20230106
  Transmission Date: 20230418
  Serious: Yes (Disabling)
  Sender: FDA-Public Use
  Company Number: None

PATIENT
  Age: 77 Year
  Sex: Female
  Weight: 95.4 kg

DRUGS (3)
  1. CHLORHEXIDINE GLUCONATE [Suspect]
     Active Substance: CHLORHEXIDINE GLUCONATE
     Indication: Antibiotic prophylaxis
     Dosage: FREQUENCY : TWICE A DAY;?
     Route: 048
     Dates: start: 20220910
  2. Levothyroxine 25mg daily [Concomitant]
  3. Sublingual B-12 [Concomitant]

REACTIONS (6)
  - Glossodynia [None]
  - Ageusia [None]
  - Tooth discolouration [None]
  - Gingival pain [None]
  - Saliva altered [None]
  - Anosmia [None]

NARRATIVE: CASE EVENT DATE: 20220910
